FAERS Safety Report 11455638 (Version 1)
Quarter: 2015Q3

REPORT INFORMATION
  Report Type: Spontaneous
  Country: US (occurrence: US)
  Receive Date: 20150903
  Receipt Date: 20150903
  Transmission Date: 20151125
  Serious: No
  Sender: FDA-Public Use
  Company Number: US-BEH-2014045640

PATIENT
  Sex: Female
  Weight: 48 kg

DRUGS (14)
  1. ALBUTEROL. [Concomitant]
     Active Substance: ALBUTEROL
  2. IMITREX [Concomitant]
     Active Substance: SUMATRIPTAN\SUMATRIPTAN SUCCINATE
  3. SODIUM CHLORIDE. [Concomitant]
     Active Substance: SODIUM CHLORIDE
  4. EPIPEN [Concomitant]
     Active Substance: EPINEPHRINE
  5. SYMBICORT [Concomitant]
     Active Substance: BUDESONIDE\FORMOTEROL FUMARATE DIHYDRATE
  6. PERCOCET [Concomitant]
     Active Substance: ACETAMINOPHEN\OXYCODONE HYDROCHLORIDE
  7. PERFOROMIST [Concomitant]
     Active Substance: FORMOTEROL FUMARATE DIHYDRATE
  8. DIPHENHYDRAMINE. [Concomitant]
     Active Substance: DIPHENHYDRAMINE
  9. SPIRIVA [Concomitant]
     Active Substance: TIOTROPIUM BROMIDE MONOHYDRATE
  10. ATIVAN [Concomitant]
     Active Substance: LORAZEPAM
  11. ZEMAIRA [Suspect]
     Active Substance: .ALPHA.1-PROTEINASE INHIBITOR HUMAN
     Indication: ALPHA-1 ANTI-TRYPSIN DEFICIENCY
     Route: 042
     Dates: start: 20141001, end: 20141028
  12. OXYGEN. [Concomitant]
     Active Substance: OXYGEN
  13. IPRATROPIUM BR [Concomitant]
  14. BENTYL [Concomitant]
     Active Substance: DICYCLOMINE HYDROCHLORIDE

REACTIONS (3)
  - Myalgia [Unknown]
  - Fatigue [Unknown]
  - Headache [Unknown]
